FAERS Safety Report 10573925 (Version 2)
Quarter: 2014Q4

REPORT INFORMATION
  Report Type: Spontaneous
  Country: US (occurrence: US)
  Receive Date: 20141110
  Receipt Date: 20141120
  Transmission Date: 20150529
  Serious: No
  Sender: FDA-Public Use
  Company Number: US-TEVA-520916USA

PATIENT
  Age: 29 Year
  Sex: Female
  Weight: 63.56 kg

DRUGS (2)
  1. NUVIGIL [Suspect]
     Active Substance: ARMODAFINIL
     Indication: NARCOLEPSY
     Dosage: TOOK HALF OF 250 MG TABLET
     Dates: start: 20141102
  2. NUVIGIL [Suspect]
     Active Substance: ARMODAFINIL
     Indication: CATAPLEXY

REACTIONS (5)
  - Somnolence [Not Recovered/Not Resolved]
  - Adverse drug reaction [Not Recovered/Not Resolved]
  - Feeling abnormal [Recovered/Resolved]
  - Speech disorder [Not Recovered/Not Resolved]
  - Fatigue [Not Recovered/Not Resolved]

NARRATIVE: CASE EVENT DATE: 201411
